FAERS Safety Report 9049816 (Version 1)
Quarter: 2013Q1

REPORT INFORMATION
  Report Type: Spontaneous
  Country: IT (occurrence: IT)
  Receive Date: 20130205
  Receipt Date: 20130205
  Transmission Date: 20140127
  Serious: Yes (Hospitalization)
  Sender: FDA-Public Use
  Company Number: IT-MYLANLABS-2013S1001805

PATIENT
  Age: 45 Year
  Sex: Female

DRUGS (5)
  1. PACLITAXEL [Suspect]
     Indication: PRODUCT USED FOR UNKNOWN INDICATION
     Route: 042
     Dates: start: 20120726, end: 20120726
  2. AVASTIN [Suspect]
     Indication: PRODUCT USED FOR UNKNOWN INDICATION
     Route: 042
     Dates: start: 20120726, end: 20120726
  3. CARBOPLATIN [Suspect]
     Indication: PRODUCT USED FOR UNKNOWN INDICATION
     Route: 042
     Dates: start: 20120726, end: 20120726
  4. TRIATEC [Concomitant]
     Indication: PRODUCT USED FOR UNKNOWN INDICATION
  5. BINOCRIT [Concomitant]
     Indication: PRODUCT USED FOR UNKNOWN INDICATION

REACTIONS (9)
  - Hyperpyrexia [Unknown]
  - Nausea [Unknown]
  - Prothrombin time prolonged [Unknown]
  - Blood creatine phosphokinase increased [Unknown]
  - Blood creatine increased [Unknown]
  - Haemoglobin decreased [Unknown]
  - Blood lactate dehydrogenase increased [Unknown]
  - Blood sodium decreased [Unknown]
  - Blood glucose increased [Unknown]
